FAERS Safety Report 6431865-X (Version None)
Quarter: 2009Q4

REPORT INFORMATION
  Report Type: 
  Country: None (occurrence: None)
  Receive Date: 20091108
  Receipt Date: 20091027
  Transmission Date: 20100525
  Serious: Yes (Other)
  Sender: FDA-Public Use
  Company Number: US-ASTRAZENECA-2009SE22852

PATIENT
  Age: 45 Year
  Sex: Male
  Weight: 120.2 kg

DRUGS (3)
  1. SEROQUEL [Suspect]
     Route: 048
     Dates: start: 20040101, end: 20060101
  2. RISPERDAL [Concomitant]
  3. ZYPREXA [Concomitant]

REACTIONS (6)
  - DIABETES MELLITUS [None]
  - LIVER DISORDER [None]
  - PARKINSON'S DISEASE [None]
  - PNEUMOCYSTIS JIROVECI PNEUMONIA [None]
  - POST-TRAUMATIC STRESS DISORDER [None]
  - RENAL FAILURE CHRONIC [None]
